FAERS Safety Report 5023296-4 (Version None)
Quarter: 2006Q2

REPORT INFORMATION
  Report Type: 
  Country: None (occurrence: None)
  Receive Date: 20060501
  Receipt Date: 20051202
  Transmission Date: 20061013
  Serious: No
  Sender: FDA-Public Use
  Company Number: NARC20050005

PATIENT

DRUGS (1)
  1. NARCAN [Suspect]
     Indication: POSTOPERATIVE ANALGESIA
     Dates: start: 20051101, end: 20051101

REACTIONS (1)
  - PULMONARY OEDEMA [None]
